FAERS Safety Report 22594458 (Version 1)
Quarter: 2023Q2

REPORT INFORMATION
  Report Type: Spontaneous
  Country: US (occurrence: US)
  Receive Date: 20230613
  Receipt Date: 20230613
  Transmission Date: 20230721
  Serious: Yes (Other)
  Sender: FDA-Public Use
  Company Number: US-HORIZON THERAPEUTICS-HZN-2023-004327

PATIENT

DRUGS (2)
  1. PENNSAID [Suspect]
     Active Substance: DICLOFENAC SODIUM
     Indication: Plantar fascial fibromatosis
     Dosage: UNK
     Route: 065
     Dates: end: 20230319
  2. DICLOFENAC SODIUM [Suspect]
     Active Substance: DICLOFENAC SODIUM
     Indication: Plantar fascial fibromatosis
     Dosage: APPLY ONE PUMP TO BOTH FEET DAILY
     Route: 065
     Dates: start: 20230320

REACTIONS (4)
  - Knee arthroplasty [Unknown]
  - Off label use [Unknown]
  - Death of relative [Unknown]
  - Device issue [Unknown]

NARRATIVE: CASE EVENT DATE: 20230101
